FAERS Safety Report 20149830 (Version 1)
Quarter: 2021Q4

REPORT INFORMATION
  Report Type: Spontaneous
  Country: ES (occurrence: ES)
  Receive Date: 20211206
  Receipt Date: 20211206
  Transmission Date: 20220303
  Serious: Yes (Other)
  Sender: FDA-Public Use
  Company Number: ES-EMA-DD-20211123-mukherjee_s4-134448

PATIENT

DRUGS (3)
  1. VALGANCICLOVIR [Suspect]
     Active Substance: VALGANCICLOVIR
     Indication: Prophylaxis
     Dosage: UNK
     Route: 065
  2. GANCICLOVIR SODIUM [Suspect]
     Active Substance: GANCICLOVIR SODIUM
     Indication: Cytomegalovirus infection
     Dosage: UNK, INFUSION, POWDER
     Route: 042
  3. IMMUNE GLOBULIN NOS [Suspect]
     Active Substance: IMMUNE GLOBULIN NOS
     Indication: Cytomegalovirus infection
     Dosage: UNK, 2 MONTHS; 100 PAUL EHRLICH INSTITUTE UNITS/ML IN 100 ML/WEEK (TOTAL OF 4 DOSES)
     Route: 042

REACTIONS (2)
  - Viral load increased [Recovered/Resolved]
  - Condition aggravated [Recovering/Resolving]
